FAERS Safety Report 21802817 (Version 1)
Quarter: 2022Q4

REPORT INFORMATION
  Report Type: Spontaneous
  Country: CN (occurrence: CN)
  Receive Date: 20221231
  Receipt Date: 20221231
  Transmission Date: 20230112
  Serious: Yes (Death, Life-Threatening, Other)
  Sender: FDA-Public Use
  Company Number: CN-AMGEN-CHNSP2022223305

PATIENT

DRUGS (2)
  1. XGEVA [Suspect]
     Active Substance: DENOSUMAB
     Indication: Metastases to bone
     Dosage: UNK
     Route: 065
  2. XGEVA [Suspect]
     Active Substance: DENOSUMAB
     Indication: Hepatocellular carcinoma

REACTIONS (19)
  - Death [Fatal]
  - Hypothyroidism [Unknown]
  - Haemorrhagic diathesis [Unknown]
  - Hepatocellular carcinoma [Unknown]
  - Pruritus [Unknown]
  - Transaminases increased [Unknown]
  - Decreased appetite [Unknown]
  - Rash [Unknown]
  - Therapy partial responder [Unknown]
  - Muscular weakness [Unknown]
  - Palmar-plantar erythrodysaesthesia syndrome [Unknown]
  - Vitiligo [Unknown]
  - Colitis [Unknown]
  - Hypertension [Unknown]
  - Pyrexia [Unknown]
  - Nausea [Unknown]
  - Fatigue [Unknown]
  - Dyspnoea [Unknown]
  - Hypocalcaemia [Unknown]
